FAERS Safety Report 15842371 (Version 1)
Quarter: 2019Q1

REPORT INFORMATION
  Report Type: Spontaneous
  Country: GB (occurrence: GB)
  Receive Date: 20190118
  Receipt Date: 20190118
  Transmission Date: 20190417
  Serious: Yes (Hospitalization, Other)
  Sender: FDA-Public Use
  Company Number: GB-BAUSCH-BL-2019-001532

PATIENT
  Age: 90 Year
  Sex: Male

DRUGS (4)
  1. PREDNISOLONE. [Suspect]
     Active Substance: PREDNISOLONE
     Indication: KERATITIS
     Route: 047
  2. AZTREONAM. [Concomitant]
     Active Substance: AZTREONAM
     Indication: BILIARY SEPSIS
  3. TEICOPLANIN [Concomitant]
     Active Substance: TEICOPLANIN
     Indication: BILIARY SEPSIS
  4. CHLORAMPHENICOL [Suspect]
     Active Substance: CHLORAMPHENICOL
     Indication: KERATITIS
     Route: 047

REACTIONS (2)
  - Stenotrophomonas infection [Recovering/Resolving]
  - Keratitis [Recovering/Resolving]
